FAERS Safety Report 4435187-8 (Version None)
Quarter: 2004Q3

REPORT INFORMATION
  Report Type: 
  Country: None (occurrence: None)
  Receive Date: 20040826
  Receipt Date: 20040817
  Transmission Date: 20050211
  Serious: Yes (Hospitalization)
  Sender: FDA-Public Use
  Company Number: HQWYE339117AUG04

PATIENT
  Age: 77 Year
  Sex: Female

DRUGS (9)
  1. CORDARONE [Suspect]
     Indication: ATRIAL FIBRILLATION
     Dosage: 200 MG 1X PER 1 DAY ORAL
     Route: 048
     Dates: start: 20010615, end: 20040615
  2. LASIX [Suspect]
     Dosage: 60 MG 1X EPR 1 DAY ORAL
     Route: 048
     Dates: end: 20040710
  3. OMEPRAZOLE [Suspect]
     Dosage: ORAL
     Route: 048
     Dates: end: 20040615
  4. RAMIPRIL [Suspect]
     Dosage: ORAL
     Route: 048
     Dates: end: 20040615
  5. FOLIC ACID [Concomitant]
  6. MORPHINE SULFATE [Concomitant]
  7. POTASSIUM CHLORIDE [Concomitant]
  8. OFLOXACIN [Concomitant]
  9. CORTANCYL (PREDNISONE) [Concomitant]

REACTIONS (6)
  - HYPOCHROMIC ANAEMIA [None]
  - NEUTROPENIA [None]
  - NEUTROPHIL COUNT INCREASED [None]
  - NORMOCHROMIC NORMOCYTIC ANAEMIA [None]
  - THROMBOCYTOPENIA [None]
  - WHITE BLOOD CELL COUNT DECREASED [None]
